FAERS Safety Report 7969805-4 (Version None)
Quarter: 2011Q4

REPORT INFORMATION
  Report Type: 
  Country: None (occurrence: None)
  Receive Date: 20111122
  Receipt Date: 20110810
  Transmission Date: 20120403
  Serious: No
  Sender: FDA-Public Use
  Company Number: PHEH2011US01733

PATIENT
  Sex: Male

DRUGS (1)
  1. GILENYA [Suspect]
     Dosage: 0.5 MG, OT
     Dates: start: 20110802

REACTIONS (2)
  - FATIGUE [None]
  - ASTHENIA [None]
